FAERS Safety Report 7249458-3 (Version None)
Quarter: 2011Q1

REPORT INFORMATION
  Report Type: 
  Country: None (occurrence: None)
  Receive Date: 20110128
  Receipt Date: 20110125
  Transmission Date: 20110831
  Serious: Yes (Death, Hospitalization)
  Sender: FDA-Public Use
  Company Number: PHHY2011US05651

PATIENT
  Sex: Female

DRUGS (1)
  1. EXJADE [Suspect]
     Dosage: UNK

REACTIONS (3)
  - DEATH [None]
  - CHRONIC OBSTRUCTIVE PULMONARY DISEASE [None]
  - ASTHENIA [None]
